FAERS Safety Report 10038436 (Version 5)
Quarter: 2014Q2

REPORT INFORMATION
  Report Type: Spontaneous
  Country: CA (occurrence: CA)
  Receive Date: 20140326
  Receipt Date: 20140617
  Transmission Date: 20141212
  Serious: Yes (Other)
  Sender: FDA-Public Use
  Company Number: CA-GLAXOSMITHKLINE-A1054030A

PATIENT
  Age: 33 Year
  Sex: Female
  Weight: 130 kg

DRUGS (11)
  1. BENLYSTA [Suspect]
     Indication: SYSTEMIC LUPUS ERYTHEMATOSUS
     Dosage: 1200MG SEE DOSAGE TEXT
     Route: 042
     Dates: start: 20131217, end: 20140609
  2. TARGIN [Concomitant]
  3. PLAQUENIL [Concomitant]
  4. BACLOFEN [Concomitant]
     Dosage: 50MG TWICE PER DAY
     Route: 048
  5. CARBAMAZEPINE [Concomitant]
     Dosage: 600MG TWICE PER DAY
     Route: 048
  6. LYRICA [Concomitant]
     Dosage: 300MG TWICE PER DAY
     Route: 048
  7. UNKNOWN ANTI-TUBERCULOSIS DRUGS [Concomitant]
  8. TRAMADOL [Concomitant]
     Dosage: 200MG PER DAY
     Route: 048
  9. PANTOPRAZOL [Concomitant]
     Dosage: 40MG PER DAY
     Route: 048
  10. PREDNISONE [Concomitant]
     Dosage: 15MG PER DAY
  11. FLEXERIL [Concomitant]

REACTIONS (12)
  - Rash erythematous [Not Recovered/Not Resolved]
  - Neck pain [Unknown]
  - Lymphadenopathy [Unknown]
  - Oropharyngeal pain [Unknown]
  - Pyrexia [Unknown]
  - Dysphonia [Unknown]
  - Dry mouth [Unknown]
  - Malaise [Recovered/Resolved]
  - Tooth infection [Unknown]
  - Menorrhagia [Recovered/Resolved]
  - Tooth abscess [Unknown]
  - Herpes zoster [Recovered/Resolved]
